FAERS Safety Report 25586713 (Version 1)
Quarter: 2025Q3

REPORT INFORMATION
  Report Type: Spontaneous
  Country: CN (occurrence: CN)
  Receive Date: 20250721
  Receipt Date: 20250721
  Transmission Date: 20251021
  Serious: Yes (Hospitalization, Disabling)
  Sender: JOHNSON AND JOHNSON
  Company Number: CN-JNJFOC-20250721440

PATIENT
  Age: 85 Year
  Sex: Male

DRUGS (3)
  1. DARZALEX [Suspect]
     Active Substance: DARATUMUMAB
     Indication: Plasma cell myeloma
     Dosage: LAST DOSE ADMINISTERED ON 12-JUN-2025
     Route: 042
     Dates: start: 20250605
  2. LENALIDOMIDE [Concomitant]
     Active Substance: LENALIDOMIDE
     Indication: Plasma cell myeloma
     Dates: start: 20250605
  3. DEXAMETHASONE [Concomitant]
     Active Substance: DEXAMETHASONE
     Indication: Plasma cell myeloma
     Dosage: D1-2, 8-9, 15-16, 22-23
     Route: 065
     Dates: start: 20250605

REACTIONS (1)
  - Agranulocytosis [Recovering/Resolving]

NARRATIVE: CASE EVENT DATE: 20250612
